FAERS Safety Report 11892368 (Version 1)
Quarter: 2016Q1

REPORT INFORMATION
  Report Type: Spontaneous
  Country: DE (occurrence: DE)
  Receive Date: 20160106
  Receipt Date: 20160106
  Transmission Date: 20160526
  Serious: Yes (Other)
  Sender: FDA-Public Use
  Company Number: DE-JNJFOC-20160102400

PATIENT
  Sex: Male

DRUGS (1)
  1. REMICADE [Suspect]
     Active Substance: INFLIXIMAB
     Indication: PSORIASIS
     Route: 042

REACTIONS (4)
  - Double stranded DNA antibody [Unknown]
  - Gout [Unknown]
  - Antinuclear antibody increased [Unknown]
  - Bladder cancer [Unknown]

NARRATIVE: CASE EVENT DATE: 201509
